FAERS Safety Report 5946075-X (Version None)
Quarter: 2008Q4

REPORT INFORMATION
  Report Type: 
  Country: None (occurrence: None)
  Receive Date: 20081110
  Receipt Date: 20081031
  Transmission Date: 20090506
  Serious: No
  Sender: FDA-Public Use
  Company Number: US-ROCHE-595058

PATIENT
  Age: 32 Year
  Sex: Female

DRUGS (1)
  1. ACCUTANE [Suspect]
     Indication: ACNE
     Route: 065
     Dates: end: 20080701

REACTIONS (2)
  - NO ADVERSE EVENT [None]
  - PREGNANCY [None]
